FAERS Safety Report 20516348 (Version 1)
Quarter: 2022Q1

REPORT INFORMATION
  Report Type: Spontaneous
  Country: US (occurrence: US)
  Receive Date: 20220225
  Receipt Date: 20220225
  Transmission Date: 20220424
  Serious: No
  Sender: FDA-Public Use
  Company Number: US-BIOVITRUM-2022US02562

PATIENT
  Age: 0 Year
  Sex: Male
  Weight: 7 kg

DRUGS (6)
  1. SYNAGIS [Suspect]
     Active Substance: PALIVIZUMAB
     Indication: Congenital cystic lung
     Route: 030
     Dates: start: 20220128
  2. INFANTS TYLENOL [Concomitant]
     Active Substance: ACETAMINOPHEN
  3. CYPROHEPTADINE HYDROCHLORIDE [Concomitant]
     Active Substance: CYPROHEPTADINE HYDROCHLORIDE
  4. NEXIUM [Concomitant]
     Active Substance: ESOMEPRAZOLE MAGNESIUM
  5. LACTULOSE [Concomitant]
     Active Substance: LACTULOSE
  6. SYNAGIS [Suspect]
     Active Substance: PALIVIZUMAB
     Indication: Failure to thrive

REACTIONS (1)
  - SARS-CoV-2 test positive [Unknown]

NARRATIVE: CASE EVENT DATE: 20220214
